FAERS Safety Report 22621149 (Version 1)
Quarter: 2023Q2

REPORT INFORMATION
  Report Type: Spontaneous
  Country: PL (occurrence: PL)
  Receive Date: 20230620
  Receipt Date: 20230620
  Transmission Date: 20230722
  Serious: Yes (Hospitalization, Other)
  Sender: FDA-Public Use
  Company Number: PL-SUN PHARMACEUTICAL INDUSTRIES LTD-2023R1-395411

PATIENT
  Age: 3 Year
  Sex: Female

DRUGS (4)
  1. AZITHROMYCIN [Suspect]
     Active Substance: AZITHROMYCIN
     Indication: Cough
     Dosage: UNK
     Route: 048
  2. BUDESONIDE [Suspect]
     Active Substance: BUDESONIDE
     Indication: Cough
     Dosage: UNK
     Route: 065
  3. FENOTEROL [Suspect]
     Active Substance: FENOTEROL
     Indication: Cough
     Dosage: UNK
     Route: 065
  4. IPRATROPIUM [Suspect]
     Active Substance: IPRATROPIUM
     Indication: Cough
     Dosage: UNK
     Route: 065

REACTIONS (1)
  - Drug ineffective [Unknown]
